FAERS Safety Report 7536316-X (Version None)
Quarter: 2011Q2

REPORT INFORMATION
  Report Type: 
  Country: None (occurrence: None)
  Receive Date: 20110608
  Receipt Date: 20110608
  Transmission Date: 20111010
  Serious: No
  Sender: FDA-Public Use
  Company Number: None

PATIENT
  Age: 56 Year
  Sex: Female
  Weight: 59.8748 kg

DRUGS (2)
  1. PANTOPRAZOLE [Suspect]
     Indication: OESOPHAGEAL ULCER
     Dosage: 1 TABLET DAILY PO
     Route: 048
     Dates: start: 20110602, end: 20110604
  2. PANTOPRAZOLE [Suspect]
     Indication: GASTRITIS
     Dosage: 1 TABLET DAILY PO
     Route: 048
     Dates: start: 20110602, end: 20110604

REACTIONS (6)
  - MELAENA [None]
  - LYMPHADENOPATHY [None]
  - INSOMNIA [None]
  - BONE PAIN [None]
  - HEADACHE [None]
  - LYMPH NODE PAIN [None]
